FAERS Safety Report 9976876 (Version 1)
Quarter: 2014Q1

REPORT INFORMATION
  Report Type: Report from Study
  Country: US (occurrence: US)
  Receive Date: 20140306
  Receipt Date: 20140306
  Transmission Date: 20141002
  Serious: Yes (Other)
  Sender: FDA-Public Use
  Company Number: US-ABBVIE-13P-163-1164879-00

PATIENT
  Age: 49 Year
  Sex: Female
  Weight: 86.26 kg

DRUGS (8)
  1. HUMIRA [Suspect]
     Indication: RHEUMATOID ARTHRITIS
     Dates: start: 201305, end: 201306
  2. HUMIRA [Suspect]
     Dates: start: 201309
  3. PREDNISONE [Concomitant]
     Indication: RHEUMATOID ARTHRITIS
  4. NEXIUM [Concomitant]
     Indication: GASTROOESOPHAGEAL REFLUX DISEASE
  5. ZOLOFT [Concomitant]
     Indication: DEPRESSION
  6. GABAPENTIN [Concomitant]
     Indication: HOT FLUSH
  7. BONIVA [Concomitant]
     Indication: OSTEOPOROSIS
  8. HYDROCODONE [Concomitant]
     Indication: PAIN

REACTIONS (3)
  - Tooth abscess [Recovered/Resolved]
  - Pain in jaw [Recovered/Resolved]
  - Arthralgia [Not Recovered/Not Resolved]
